FAERS Safety Report 4725590-0 (Version None)
Quarter: 2005Q3

REPORT INFORMATION
  Report Type: 
  Country: None (occurrence: None)
  Receive Date: 20050722
  Receipt Date: 20050722
  Transmission Date: 20060218
  Serious: Yes (Hospitalization)
  Sender: FDA-Public Use
  Company Number: None

PATIENT
  Age: 52 Year
  Sex: Female

DRUGS (1)
  1. FENTANYL [Suspect]

REACTIONS (3)
  - DRUG ERUPTION [None]
  - RASH PRURITIC [None]
  - SKIN HYPERPIGMENTATION [None]
